FAERS Safety Report 5571055-6 (Version None)
Quarter: 2007Q4

REPORT INFORMATION
  Report Type: 
  Country: None (occurrence: None)
  Receive Date: 20071221
  Receipt Date: 20071218
  Transmission Date: 20080405
  Serious: Yes (Other)
  Sender: FDA-Public Use
  Company Number: FR-ROCHE-422715

PATIENT
  Age: 53 Year
  Sex: Male
  Weight: 91 kg

DRUGS (14)
  1. PEG-INTERFERON ALFA 2A (RO 25-8310) [Suspect]
     Dosage: DATE OF LAST DOSE PRIOR TO SAE REPORTED AS 07 JANUARY 2005.
     Route: 058
     Dates: start: 20040625, end: 20050401
  2. PEG-INTERFERON ALFA 2A (RO 25-8310) [Suspect]
     Route: 058
     Dates: start: 20050401
  3. PEG-INTERFERON ALFA 2A (RO 25-8310) [Suspect]
     Route: 058
     Dates: end: 20070501
  4. RIBAVIRIN [Concomitant]
  5. INSULINE [Concomitant]
     Dates: start: 20040907
  6. CALCIUM [Concomitant]
     Dates: start: 20041217
  7. ZYLORIC [Concomitant]
     Dosage: START DATE REPORTED AS ^BEFORE^.
  8. RANIPLEX [Concomitant]
     Dates: start: 20040601
  9. TENORMIN [Concomitant]
     Dosage: START DATE REPORTED AS ^START OF TREATMENT BY INTERFERON^.
  10. AMLOR [Concomitant]
     Dosage: START DATE REPORTED AS ^START OF TREATMENT BY INTERFERON^.
  11. ZYRTEC [Concomitant]
     Dosage: START DATE REPORTED AS ^START OF TREATMENT BY INTERFERON^.
  12. MOPRAL [Concomitant]
     Dates: start: 20040706
  13. MULTIVITAMIN [Concomitant]
     Dates: start: 20040928
  14. DEDROGYL [Concomitant]
     Dates: end: 20050503

REACTIONS (1)
  - COMPLEX REGIONAL PAIN SYNDROME [None]
